FAERS Safety Report 10167532 (Version 1)
Quarter: 2014Q2

REPORT INFORMATION
  Report Type: Spontaneous
  Country: IT (occurrence: IT)
  Receive Date: 20140512
  Receipt Date: 20140512
  Transmission Date: 20141212
  Serious: Yes (Hospitalization)
  Sender: FDA-Public Use
  Company Number: IT-PFIZER INC-2014126223

PATIENT
  Sex: Male

DRUGS (1)
  1. RAMIPRIL [Suspect]
     Dosage: UNK

REACTIONS (3)
  - Drug interaction [Recovering/Resolving]
  - Hypertensive crisis [Recovering/Resolving]
  - Epistaxis [Recovering/Resolving]
